FAERS Safety Report 5031311-7 (Version None)
Quarter: 2006Q2

REPORT INFORMATION
  Report Type: 
  Country: None (occurrence: None)
  Receive Date: 20060616
  Receipt Date: 20060530
  Transmission Date: 20061013
  Serious: Yes (Death, Hospitalization)
  Sender: FDA-Public Use
  Company Number: 226192

PATIENT
  Age: 62 Year
  Sex: Female
  Weight: 74.3 kg

DRUGS (8)
  1. AVASTIN [Suspect]
     Indication: COLORECTAL CANCER
     Dosage: 560 MG, Q3W, INTRAVENOUS
     Route: 042
     Dates: start: 20060113, end: 20060407
  2. CAPECITABINE (CAPECITABINE) [Suspect]
     Indication: COLORECTAL CANCER
     Dosage: 1800 MG, BID, ORAL
     Route: 048
     Dates: start: 20060113
  3. OXALIPLATIN (OXALIPLATIN) [Suspect]
     Indication: COLORECTAL CANCER
     Dosage: 240 MG, Q3W, INTRAVENOUS
     Route: 042
     Dates: start: 20060113, end: 20060407
  4. GLUCOBAY [Concomitant]
  5. GLYBURIDE [Concomitant]
  6. LEVOTHYROXINE SODIUM [Concomitant]
  7. BETALOC (METOPROLOL TARTRATE) [Concomitant]
  8. NITROMINT (NITROGLYCERIN) [Concomitant]

REACTIONS (30)
  - ABDOMINAL PAIN UPPER [None]
  - ARTERIOSCLEROSIS [None]
  - ATRIAL FIBRILLATION [None]
  - BLOOD BILIRUBIN INCREASED [None]
  - BLOOD CREATININE INCREASED [None]
  - BLOOD GLUCOSE INCREASED [None]
  - BLOOD PRESSURE SYSTOLIC INCREASED [None]
  - C-REACTIVE PROTEIN INCREASED [None]
  - CARDIAC DISORDER [None]
  - CARDIO-RESPIRATORY ARREST [None]
  - COR PULMONALE [None]
  - DEHYDRATION [None]
  - DYSPNOEA [None]
  - EMPHYSEMA [None]
  - EROSIVE OESOPHAGITIS [None]
  - HAEMATOCRIT DECREASED [None]
  - HAEMOGLOBIN ABNORMAL [None]
  - HEPATIC FIBROSIS [None]
  - HEPATIC STEATOSIS [None]
  - HYPOTENSION [None]
  - LEFT VENTRICULAR FAILURE [None]
  - LEUKOPENIA [None]
  - OEDEMA [None]
  - OVARIAN CYST [None]
  - PULMONARY OEDEMA [None]
  - RENAL DISORDER [None]
  - SCAR [None]
  - SUDDEN DEATH [None]
  - SUPRAVENTRICULAR TACHYARRHYTHMIA [None]
  - VOMITING [None]
